FAERS Safety Report 20793353 (Version 2)
Quarter: 2022Q2

REPORT INFORMATION
  Report Type: Spontaneous
  Country: US (occurrence: US)
  Receive Date: 20220506
  Receipt Date: 20220508
  Transmission Date: 20220721
  Serious: No
  Sender: FDA-Public Use
  Company Number: US-JNJFOC-20220453989

PATIENT
  Age: 54 Year
  Sex: Male

DRUGS (4)
  1. SPRAVATO [Suspect]
     Active Substance: ESKETAMINE
     Indication: Major depression
     Dates: start: 20220412
  2. SPRAVATO [Suspect]
     Active Substance: ESKETAMINE
     Dates: start: 20220415
  3. SPRAVATO [Suspect]
     Active Substance: ESKETAMINE
     Dates: start: 20220419
  4. SPRAVATO [Suspect]
     Active Substance: ESKETAMINE
     Dates: start: 20220421

REACTIONS (1)
  - Product quality issue [Unknown]

NARRATIVE: CASE EVENT DATE: 20220412
